APPROVED DRUG PRODUCT: PROPRANOLOL HYDROCHLORIDE
Active Ingredient: PROPRANOLOL HYDROCHLORIDE
Strength: 60MG
Dosage Form/Route: TABLET;ORAL
Application: A070178 | Product #002
Applicant: WATSON LABORATORIES INC
Approved: Apr 23, 2018 | RLD: No | RS: No | Type: DISCN